FAERS Safety Report 9165588 (Version 1)
Quarter: 2013Q1

REPORT INFORMATION
  Report Type: Spontaneous
  Country: SE (occurrence: SE)
  Receive Date: 20130315
  Receipt Date: 20130315
  Transmission Date: 20140127
  Serious: Yes (Other)
  Sender: FDA-Public Use
  Company Number: SE-JNJFOC-20130304051

PATIENT
  Age: 75 Year
  Sex: Female

DRUGS (9)
  1. REMICADE [Suspect]
     Indication: RHEUMATOID ARTHRITIS
     Route: 042
     Dates: start: 20130128
  2. REMICADE [Suspect]
     Indication: RHEUMATOID ARTHRITIS
     Dosage: SECOND AND LAST INFUSION
     Route: 042
     Dates: start: 20130211, end: 20130226
  3. BISOPROLOL [Concomitant]
     Route: 065
  4. BRUFEN [Concomitant]
     Route: 065
  5. VALTREX [Concomitant]
     Route: 065
  6. EUTHYROX [Concomitant]
     Route: 065
  7. LOSARTAN [Concomitant]
     Route: 065
  8. METHOTREXATE [Concomitant]
     Route: 065
  9. PREDNISOLONE [Concomitant]
     Route: 065

REACTIONS (1)
  - Adenocarcinoma [Not Recovered/Not Resolved]
